FAERS Safety Report 4527691-9 (Version None)
Quarter: 2004Q4

REPORT INFORMATION
  Report Type: 
  Country: None (occurrence: None)
  Receive Date: 20041215
  Receipt Date: 20041209
  Transmission Date: 20050328
  Serious: Yes (Other)
  Sender: FDA-Public Use
  Company Number: BE-MERCK-0412BEL00013

PATIENT
  Age: 60 Year
  Sex: Male

DRUGS (2)
  1. ZETIA [Suspect]
     Indication: HYPERCHOLESTEROLAEMIA
     Route: 048
     Dates: start: 20040903
  2. ZOCOR [Concomitant]
     Indication: HYPERCHOLESTEROLAEMIA
     Route: 048
     Dates: start: 20040903

REACTIONS (1)
  - ACUTE MYOCARDIAL INFARCTION [None]
